FAERS Safety Report 25674982 (Version 1)
Quarter: 2025Q3

REPORT INFORMATION
  Report Type: Report from Study
  Country: US (occurrence: US)
  Receive Date: 20250813
  Receipt Date: 20250813
  Transmission Date: 20251021
  Serious: Yes (Other)
  Sender: ALEXION PHARMACEUTICALS
  Company Number: US-AstraZeneca-CH-00928393A

PATIENT
  Age: 84 Year
  Sex: Female

DRUGS (1)
  1. OSIMERTINIB [Suspect]
     Active Substance: OSIMERTINIB
     Indication: Lung carcinoma cell type unspecified stage 0
     Dosage: 40 MILLIGRAM, QD

REACTIONS (4)
  - Neuropathy peripheral [Unknown]
  - Asthenia [Unknown]
  - Depression [Unknown]
  - Diarrhoea [Unknown]
